FAERS Safety Report 8494154-8 (Version None)
Quarter: 2012Q3

REPORT INFORMATION
  Report Type: 
  Country: None (occurrence: None)
  Receive Date: 20120709
  Receipt Date: 20120703
  Transmission Date: 20120928
  Serious: Yes (Other)
  Sender: FDA-Public Use
  Company Number: PHHY2012US057071

PATIENT

DRUGS (1)
  1. CYCLOSPORINE [Suspect]

REACTIONS (2)
  - FOETAL EXPOSURE DURING PREGNANCY [None]
  - CONGENITAL CENTRAL NERVOUS SYSTEM ANOMALY [None]
